FAERS Safety Report 6043257-6 (Version None)
Quarter: 2009Q1

REPORT INFORMATION
  Report Type: 
  Country: None (occurrence: None)
  Receive Date: 20090119
  Receipt Date: 20090107
  Transmission Date: 20090719
  Serious: Yes (Hospitalization, Disabling)
  Sender: FDA-Public Use
  Company Number: US-ELI_LILLY_AND_COMPANY-US200901000771

PATIENT
  Sex: Female

DRUGS (15)
  1. CYMBALTA [Suspect]
     Indication: APPETITE DISORDER
     Dosage: 20 MG, 2/D
     Route: 048
     Dates: end: 20070101
  2. CYMBALTA [Suspect]
     Dosage: 30 MG, 2/D
     Route: 048
     Dates: start: 20070101
  3. MOBIC [Concomitant]
  4. GABAPENTIN [Concomitant]
  5. VICODIN [Concomitant]
  6. FLEXERIL [Concomitant]
  7. GLUCOPHAGE [Concomitant]
  8. ZOCOR [Concomitant]
  9. CHROMIUM [Concomitant]
  10. MELATONIN [Concomitant]
  11. CLARITIN [Concomitant]
  12. SUDAFED 12 HOUR [Concomitant]
  13. BENADRYL [Concomitant]
  14. XALATAN [Concomitant]
  15. PREMPRO [Concomitant]

REACTIONS (10)
  - ACTIVITIES OF DAILY LIVING IMPAIRED [None]
  - ANXIETY [None]
  - DEPRESSION [None]
  - DRUG INEFFECTIVE [None]
  - FALL [None]
  - GAIT DISTURBANCE [None]
  - HAEMATOCRIT DECREASED [None]
  - MENOPAUSE [None]
  - MOBILITY DECREASED [None]
  - SURGERY [None]
